FAERS Safety Report 23295668 (Version 1)
Quarter: 2023Q4

REPORT INFORMATION
  Report Type: Spontaneous
  Country: US (occurrence: US)
  Receive Date: 20231214
  Receipt Date: 20231214
  Transmission Date: 20240109
  Serious: No
  Sender: FDA-Public Use
  Company Number: US-ALVOGEN-2023091891

PATIENT
  Sex: Female

DRUGS (1)
  1. FENTANYL [Suspect]
     Active Substance: FENTANYL\FENTANYL CITRATE
     Indication: Pain
     Dosage: EXPIRATION DATE: UU-FEB-2026?100 MCG/HOUR?SHE USED THE FIRST ONE ON 04-JUL-2023
     Dates: start: 20230704

REACTIONS (6)
  - Muscle spasms [Unknown]
  - Nausea [Unknown]
  - Device malfunction [Unknown]
  - Device adhesion issue [Unknown]
  - Device issue [Unknown]
  - Wrong technique in device usage process [Unknown]

NARRATIVE: CASE EVENT DATE: 20230701
